FAERS Safety Report 14450741 (Version 1)
Quarter: 2018Q1

REPORT INFORMATION
  Report Type: Spontaneous
  Country: MX (occurrence: MX)
  Receive Date: 20180126
  Receipt Date: 20180126
  Transmission Date: 20180509
  Serious: Yes (Disabling)
  Sender: FDA-Public Use
  Company Number: None

PATIENT
  Age: 25 Year
  Sex: Male
  Weight: 70 kg

DRUGS (5)
  1. OMEGA 3 FATTY ACID (FISH OIL) [Concomitant]
  2. MELATONIN [Concomitant]
     Active Substance: MELATONIN
  3. MAGNESIUM [Concomitant]
     Active Substance: MAGNESIUM
  4. PRISTIQ EXTENDED-RELEASE [Suspect]
     Active Substance: DESVENLAFAXINE SUCCINATE
     Indication: DEPRESSION
     Dosage: ?          QUANTITY:28 TABLET(S);?
     Route: 048
  5. Q-MIND QUETIAPINE TABLETS 100MG [Suspect]
     Active Substance: QUETIAPINE
     Dosage: ?          QUANTITY:30 TABLET(S);?
     Route: 048

REACTIONS (15)
  - Dry mouth [None]
  - Somnolence [None]
  - Restlessness [None]
  - Tinnitus [None]
  - Feeling hot [None]
  - Disturbance in attention [None]
  - Pruritus [None]
  - Dizziness [None]
  - Palpitations [None]
  - Tongue spasm [None]
  - Tremor [None]
  - Thirst [None]
  - Headache [None]
  - Dry throat [None]
  - Fatigue [None]

NARRATIVE: CASE EVENT DATE: 20171201
